FAERS Safety Report 10640178 (Version 1)
Quarter: 2014Q4

REPORT INFORMATION
  Report Type: Spontaneous
  Country: JP (occurrence: None)
  Receive Date: 20141205
  Receipt Date: 20141205
  Transmission Date: 20150529
  Serious: Yes (Death, Hospitalization)
  Sender: FDA-Public Use
  Company Number: FK201405805

PATIENT
  Age: 60 Year
  Sex: Male
  Weight: 71.1 kg

DRUGS (8)
  1. CARBOPLATIN (MANUFACTURER UNKNOWN) (CARBOPLATIN) (CARBOPLATIN) [Suspect]
     Active Substance: CARBOPLATIN
     Indication: LUNG CANCER METASTATIC
     Dosage: 6 MG/ML. 3 IN 1
  2. CARBOPLATIN (MANUFACTURER UNKNOWN) (CARBOPLATIN) (CARBOPLATIN) [Suspect]
     Active Substance: CARBOPLATIN
     Indication: METASTASES TO CENTRAL NERVOUS SYSTEM
     Dosage: 6 MG/ML. 3 IN 1
  3. PACLITAXEL (MANUFACTURER UNKNOWN) (PACLITAXEL) (PACLITAXEL) [Suspect]
     Active Substance: PACLITAXEL
     Indication: METASTASES TO BREAST
     Dosage: 200 MG/M2, 3 IN 1 WK
  4. PACLITAXEL (MANUFACTURER UNKNOWN) (PACLITAXEL) (PACLITAXEL) [Suspect]
     Active Substance: PACLITAXEL
     Indication: METASTASES TO BONE
     Dosage: 200 MG/M2, 3 IN 1 WK
  5. CARBOPLATIN (MANUFACTURER UNKNOWN) (CARBOPLATIN) (CARBOPLATIN) [Suspect]
     Active Substance: CARBOPLATIN
     Indication: METASTASES TO BREAST
     Dosage: 6 MG/ML. 3 IN 1
  6. PACLITAXEL (MANUFACTURER UNKNOWN) (PACLITAXEL) (PACLITAXEL) [Suspect]
     Active Substance: PACLITAXEL
     Indication: METASTASES TO CENTRAL NERVOUS SYSTEM
     Dosage: 200 MG/M2, 3 IN 1 WK
  7. CARBOPLATIN (MANUFACTURER UNKNOWN) (CARBOPLATIN) (CARBOPLATIN) [Suspect]
     Active Substance: CARBOPLATIN
     Indication: METASTASES TO BONE
     Dosage: 6 MG/ML. 3 IN 1
  8. PACLITAXEL (MANUFACTURER UNKNOWN) (PACLITAXEL) (PACLITAXEL) [Suspect]
     Active Substance: PACLITAXEL
     Indication: LUNG CANCER METASTATIC
     Dosage: 200 MG/M2, 3 IN 1 WK

REACTIONS (4)
  - Disseminated intravascular coagulation [None]
  - Infection [None]
  - Septic shock [None]
  - Pancytopenia [None]
